FAERS Safety Report 8876159 (Version 1)
Quarter: 2012Q4

REPORT INFORMATION
  Report Type: 
  Country: US (occurrence: US)
  Receive Date: 20121023
  Receipt Date: 20121023
  Transmission Date: 20130627
  Serious: No
  Sender: FDA-Public Use
  Company Number: US-009507513-1101USA02952

PATIENT

DRUGS (6)
  1. FOSAMAX [Suspect]
     Indication: OSTEOPENIA
     Dosage: 70 mg, UNK
     Route: 048
     Dates: start: 200311
  2. FOSAMAX [Suspect]
     Indication: OSTEOPOROSIS
  3. FOSAMAX D [Concomitant]
     Indication: OSTEOPENIA
     Dosage: 70 mg, QW
     Route: 048
     Dates: start: 20061205, end: 200803
  4. FOSAMAX D [Concomitant]
     Indication: OSTEOPOROSIS
  5. FOSAMAX [Concomitant]
     Indication: OSTEOPENIA
     Dosage: 70 mg, QW
     Route: 048
     Dates: start: 20080303
  6. FOSAMAX [Concomitant]
     Indication: OSTEOPOROSIS

REACTIONS (12)
  - Bone loss [Unknown]
  - Bone loss [Unknown]
  - Pain in jaw [Unknown]
  - Haemangioma [Unknown]
  - Nasal congestion [Unknown]
  - Paranasal sinus hypersecretion [Unknown]
  - Vertigo [Unknown]
  - Neck pain [Unknown]
  - Tooth disorder [Unknown]
  - Back pain [Unknown]
  - Dental caries [Unknown]
  - Ear pain [Unknown]
